FAERS Safety Report 8285823-3 (Version None)
Quarter: 2012Q2

REPORT INFORMATION
  Report Type: 
  Country: None (occurrence: None)
  Receive Date: 20120413
  Receipt Date: 20120405
  Transmission Date: 20120825
  Serious: Yes (Other)
  Sender: FDA-Public Use
  Company Number: US-ELI_LILLY_AND_COMPANY-US201110002139

PATIENT
  Sex: Female

DRUGS (14)
  1. FORTEO [Suspect]
     Dosage: 20 UG, QD
  2. VITAMIN TAB [Concomitant]
     Indication: EYE DISORDER
  3. MULTI-VITAMINS [Concomitant]
  4. CRANBERRY [Concomitant]
     Dosage: UNK, TID
  5. FORTEO [Suspect]
     Dosage: 20 UG, QD
  6. TYLENOL W/ CODEINE NO. 3 [Concomitant]
     Dosage: UNK
  7. REQUIP [Concomitant]
     Indication: RESTLESS LEGS SYNDROME
  8. NIACIN [Concomitant]
     Dosage: UNK, QD
  9. AMIODARONE HCL [Concomitant]
     Indication: VENTRICULAR FIBRILLATION
  10. FORTEO [Suspect]
     Indication: OSTEOPOROSIS
     Dosage: 20 UG, QD
     Dates: start: 20110801
  11. FORTEO [Suspect]
     Dosage: 20 UG, QD
  12. PREDNISONE TAB [Concomitant]
     Dosage: 15 MG, UNK
  13. ATIVAN [Concomitant]
  14. SIMVASTATIN [Concomitant]
     Dosage: UNK, QD

REACTIONS (12)
  - ASTHENIA [None]
  - DECREASED APPETITE [None]
  - WEIGHT BEARING DIFFICULTY [None]
  - LYMPHOMA [None]
  - MALIGNANT MESENTERIC NEOPLASM [None]
  - ANXIETY [None]
  - MALAISE [None]
  - INSOMNIA [None]
  - LYMPHADENOPATHY [None]
  - RHINORRHOEA [None]
  - DYSSTASIA [None]
  - BACK DISORDER [None]
